FAERS Safety Report 4951489-0 (Version None)
Quarter: 2006Q1

REPORT INFORMATION
  Report Type: 
  Country: None (occurrence: None)
  Receive Date: 20060323
  Receipt Date: 20060313
  Transmission Date: 20060701
  Serious: Yes (Other)
  Sender: FDA-Public Use
  Company Number: PHBS2006IT04166

PATIENT
  Age: 74 Year
  Sex: Female

DRUGS (2)
  1. LISINOPRIL [Suspect]
  2. HYDROCHLOROTHIAZIDE [Suspect]

REACTIONS (2)
  - PITYRIASIS ROSEA [None]
  - RASH [None]
